FAERS Safety Report 7659926-8 (Version None)
Quarter: 2011Q3

REPORT INFORMATION
  Report Type: 
  Country: None (occurrence: None)
  Receive Date: 20110802
  Receipt Date: 20110727
  Transmission Date: 20111222
  Serious: Yes (Death, Hospitalization)
  Sender: FDA-Public Use
  Company Number: 2011SP035399

PATIENT
  Age: 59 Year
  Sex: Female

DRUGS (2)
  1. REBETOL [Suspect]
     Indication: HEPATITIS C
     Dosage: 600 MG, QD, PO
     Route: 048
     Dates: start: 20090201
  2. PEG-INTRON [Suspect]
     Indication: HEPATITIS C
     Dosage: 80 MCG, QW, SC
     Route: 058
     Dates: start: 20090201

REACTIONS (6)
  - MEDIASTINAL ABSCESS [None]
  - SEPTIC SHOCK [None]
  - PROTHROMBIN TIME PROLONGED [None]
  - PLATELET COUNT DECREASED [None]
  - STAPHYLOCOCCAL INFECTION [None]
  - ACTIVATED PARTIAL THROMBOPLASTIN TIME PROLONGED [None]
